FAERS Safety Report 18890472 (Version 2)
Quarter: 2021Q4

REPORT INFORMATION
  Report Type: Report from Study
  Country: US (occurrence: US)
  Receive Date: 20210214
  Receipt Date: 20211203
  Transmission Date: 20220303
  Serious: Yes (Hospitalization, Other)
  Sender: FDA-Public Use
  Company Number: US-BRISTOL-MYERS SQUIBB COMPANY-BMS-2021-012136

PATIENT
  Age: 79 Year
  Sex: Female
  Weight: 69.388 kg

DRUGS (6)
  1. ABATACEPT [Suspect]
     Active Substance: ABATACEPT
     Indication: Rheumatoid arthritis
     Dosage: 750 MILLIGRAM, Q4WK
     Route: 042
     Dates: start: 2004, end: 201909
  2. ABATACEPT [Suspect]
     Active Substance: ABATACEPT
     Dosage: 750 MILLIGRAM, Q4WK
     Route: 042
     Dates: start: 202105
  3. LEVOTHYROXINE [Concomitant]
     Active Substance: LEVOTHYROXINE
     Indication: Thyroid disorder
     Dosage: 0.25 MILLIGRAM
     Route: 065
     Dates: start: 202010
  4. SYNTHROID [Concomitant]
     Active Substance: LEVOTHYROXINE SODIUM
     Indication: Product used for unknown indication
     Dosage: 50 MICROGRAM
     Route: 065
     Dates: start: 2021
  5. BIOTIN [Concomitant]
     Active Substance: BIOTIN
     Indication: Product used for unknown indication
     Route: 065
  6. METHYLPREDNISOLONE [Concomitant]
     Active Substance: METHYLPREDNISOLONE
     Indication: Thyroid disorder
     Dosage: UNK
     Route: 065

REACTIONS (15)
  - Thrombosis [Unknown]
  - Device related sepsis [Unknown]
  - Bladder cancer [Unknown]
  - Fall [Unknown]
  - Spinal cord compression [Unknown]
  - Non-Hodgkin^s lymphoma [Unknown]
  - Back disorder [Unknown]
  - Neuropathy peripheral [Unknown]
  - Capillary leak syndrome [Unknown]
  - Diabetes mellitus [Unknown]
  - Drug ineffective [Unknown]
  - Cystitis [Unknown]
  - Arthralgia [Unknown]
  - Thyroid disorder [Unknown]
  - Depression [Unknown]

NARRATIVE: CASE EVENT DATE: 20190701
